FAERS Safety Report 7996397-6 (Version None)
Quarter: 2011Q4

REPORT INFORMATION
  Report Type: 
  Country: None (occurrence: None)
  Receive Date: 20111220
  Receipt Date: 20111214
  Transmission Date: 20120403
  Serious: Yes (Hospitalization, Other)
  Sender: FDA-Public Use
  Company Number: US-MERCK-1006USA02451

PATIENT
  Age: 66 Year
  Sex: Female
  Weight: 65 kg

DRUGS (16)
  1. FOSAMAX [Suspect]
     Route: 048
     Dates: start: 20090413
  2. PREMARIN [Concomitant]
     Route: 048
     Dates: end: 20020101
  3. ASPIRIN [Concomitant]
     Route: 065
  4. FOSAMAX [Suspect]
     Indication: OSTEOPENIA
     Route: 048
     Dates: start: 20040101, end: 20061202
  5. FOSAMAX [Suspect]
     Route: 048
     Dates: start: 20000419, end: 20000601
  6. CALCIUM (UNSPECIFIED) [Concomitant]
     Route: 048
  7. PROVERA [Concomitant]
     Route: 048
  8. KERLONE [Concomitant]
     Route: 048
     Dates: end: 20020101
  9. FOSAMAX [Suspect]
     Route: 048
     Dates: start: 20000512
  10. CENTRUM SILVER [Concomitant]
     Route: 065
  11. SYNTHROID [Concomitant]
     Route: 048
  12. [THERAPY UNSPECIFIED] [Concomitant]
     Indication: STEROID THERAPY
     Route: 065
     Dates: start: 19960101, end: 20010101
  13. PREDNISONE [Concomitant]
     Indication: DIARRHOEA
     Route: 048
     Dates: start: 19970101, end: 20020101
  14. PRILOSEC [Concomitant]
     Route: 065
  15. FOSAMAX PLUS D [Suspect]
     Indication: OSTEOPENIA
     Route: 048
     Dates: start: 20061203, end: 20090501
  16. NIACIN [Concomitant]
     Route: 048
     Dates: end: 20020101

REACTIONS (57)
  - OSTEONECROSIS OF JAW [None]
  - ARTHRALGIA [None]
  - NERVOUSNESS [None]
  - SEBORRHOEIC DERMATITIS [None]
  - BACK PAIN [None]
  - DIZZINESS [None]
  - HYPERTENSION [None]
  - HYPOTHYROIDISM [None]
  - IMPAIRED HEALING [None]
  - ADVERSE DRUG REACTION [None]
  - GLUCOSE TOLERANCE IMPAIRED [None]
  - INTERMITTENT CLAUDICATION [None]
  - CORONARY ARTERY DISEASE [None]
  - TOOTH FRACTURE [None]
  - VASCULAR CALCIFICATION [None]
  - GINGIVITIS [None]
  - INSOMNIA [None]
  - COUGH [None]
  - SPINAL OSTEOARTHRITIS [None]
  - PANIC ATTACK [None]
  - ROTATOR CUFF SYNDROME [None]
  - BENIGN BREAST NEOPLASM [None]
  - RENAL FAILURE CHRONIC [None]
  - MAJOR DEPRESSION [None]
  - LETHARGY [None]
  - DEVICE RELATED INFECTION [None]
  - INFECTION [None]
  - SKIN CANCER [None]
  - DIABETES MELLITUS [None]
  - ORAL INFECTION [None]
  - NAUSEA [None]
  - BLOOD TRIGLYCERIDES INCREASED [None]
  - RENAL ARTERY STENOSIS [None]
  - PROTEINURIA [None]
  - ANAEMIA [None]
  - PERIPHERAL VASCULAR DISORDER [None]
  - BLOOD PRESSURE INCREASED [None]
  - BONE LOSS [None]
  - DEVICE FAILURE [None]
  - PAIN IN EXTREMITY [None]
  - TOOTH DISORDER [None]
  - INADEQUATE DIET [None]
  - OSTEOARTHRITIS [None]
  - PANCREATITIS CHRONIC [None]
  - CARDIAC DISORDER [None]
  - NASOPHARYNGITIS [None]
  - DEHYDRATION [None]
  - DENTAL CARIES [None]
  - INAPPROPRIATE SCHEDULE OF DRUG ADMINISTRATION [None]
  - OESTROGEN DEFICIENCY [None]
  - NEUROPATHY PERIPHERAL [None]
  - TOBACCO ABUSE [None]
  - RENAL FAILURE [None]
  - NEPHROPATHY [None]
  - RASH [None]
  - DIABETIC NEUROPATHY [None]
  - GOUT [None]
